FAERS Safety Report 8835361 (Version 3)
Quarter: 2013Q1

REPORT INFORMATION
  Report Type: Spontaneous
  Country: JP (occurrence: JP)
  Receive Date: 20121011
  Receipt Date: 20130308
  Transmission Date: 20140127
  Serious: Yes (Hospitalization)
  Sender: FDA-Public Use
  Company Number: JP-ASTRAZENECA-2012SE76141

PATIENT
  Age: 11008 Day
  Sex: Female
  Weight: 74 kg

DRUGS (10)
  1. ANAPEINE [Suspect]
     Indication: POSTOPERATIVE ANALGESIA
     Dosage: 2MG/ML, 8 MG/HR, SUBSEQUENTLY DECREASED TO 4 MG/HR
     Route: 008
     Dates: start: 20120822, end: 20120823
  2. FERROMIA [Concomitant]
     Indication: ANAEMIA
     Route: 048
     Dates: start: 20120823, end: 20120828
  3. LOXONIN [Concomitant]
     Indication: POSTOPERATIVE ANALGESIA
     Route: 048
     Dates: start: 20120823, end: 20120825
  4. SOSEGON [Concomitant]
     Indication: POSTOPERATIVE ANALGESIA
     Route: 042
     Dates: start: 20120822, end: 20120824
  5. PRIMPERAN [Concomitant]
     Indication: PROCEDURAL NAUSEA
     Dosage: 0.5%
     Route: 042
     Dates: start: 20120823, end: 20120824
  6. FENTANYL [Concomitant]
     Indication: ANALGESIC THERAPY
     Route: 042
     Dates: start: 20120822, end: 20120822
  7. DROLEPTAN [Concomitant]
     Indication: SEDATION
     Route: 042
     Dates: start: 20120822, end: 20120822
  8. RASENAZOLIN [Concomitant]
     Indication: INFECTION PROPHYLAXIS
     Route: 042
     Dates: start: 20120822, end: 20120823
  9. MARCAIN SPINAL INJECTION [Concomitant]
     Indication: SPINAL ANAESTHESIA
     Route: 029
     Dates: start: 20120822, end: 20120822
  10. XYLOCAINE [Concomitant]

REACTIONS (1)
  - Peripheral motor neuropathy [Recovering/Resolving]
